FAERS Safety Report 11368288 (Version 1)
Quarter: 2015Q3

REPORT INFORMATION
  Report Type: Spontaneous
  Country: AU (occurrence: None)
  Receive Date: 20150810
  Receipt Date: 20150810
  Transmission Date: 20151125
  Serious: Yes (Hospitalization)
  Sender: FDA-Public Use
  Company Number: IPC201507-000499

PATIENT
  Age: 70 Year
  Sex: Male

DRUGS (11)
  1. CANDESARTAN CILEXETIL. [Suspect]
     Active Substance: CANDESARTAN CILEXETIL
     Dosage: HALF TABLET EACH DAY
  2. METFORMIN HYDROCHLORIDE. [Suspect]
     Active Substance: METFORMIN HYDROCHLORIDE
  3. AMIODARONE (AMIODARONE) (AMIODARONE) [Concomitant]
  4. GLICLAZIDE MR (GLICLAZIDE) (GLICLAZIDE) [Concomitant]
  5. PROPYLTHIOURACIL (PROPYLTHIOURACIL) (PROPYLTHIOURACIL) [Concomitant]
  6. ASPIRIN (ASPIRIN) (ASPIRIN) [Concomitant]
     Active Substance: ASPIRIN
  7. CARVEDILOL (CARVEDILOL) (CARVEDILOL) [Concomitant]
     Active Substance: CARVEDILOL
  8. EZETIMIBE (EZETIMIBE) (EZETIMIBE) [Concomitant]
  9. ROSUVASTATIN (ROSUVASTATIN) (ROSUVASTATIN) [Concomitant]
     Active Substance: ROSUVASTATIN
  10. FUROSEMIDE (FUROSEMIDE) (FUROSEMIDE) [Suspect]
     Active Substance: FUROSEMIDE
  11. WARFARIN (WARFARIN) (WARFARIN) [Concomitant]
     Active Substance: WARFARIN

REACTIONS (8)
  - Renal impairment [None]
  - Hypotension [None]
  - Hyperkalaemia [None]
  - Blood creatinine increased [None]
  - Intentional product misuse [None]
  - Product physical issue [None]
  - Blood urea increased [None]
  - Dizziness [None]
